FAERS Safety Report 17754030 (Version 1)
Quarter: 2020Q2

REPORT INFORMATION
  Report Type: Report from Study
  Country: US (occurrence: US)
  Receive Date: 20200507
  Receipt Date: 20200507
  Transmission Date: 20200714
  Serious: Yes (Hospitalization)
  Sender: FDA-Public Use
  Company Number: US-GILEAD-2020-0463410

PATIENT
  Age: 78 Year
  Sex: Female

DRUGS (21)
  1. AMBRISENTAN [Suspect]
     Active Substance: AMBRISENTAN
     Indication: PULMONARY ARTERIAL HYPERTENSION
     Dosage: 10 MG
     Route: 065
     Dates: start: 20180112
  2. ALPHAGAN P [Concomitant]
     Active Substance: BRIMONIDINE TARTRATE
  3. LIPITOR [Concomitant]
     Active Substance: ATORVASTATIN CALCIUM
  4. REMODULIN [Concomitant]
     Active Substance: TREPROSTINIL
  5. SILDENAFIL. [Concomitant]
     Active Substance: SILDENAFIL
  6. BRIMONIDINE [Concomitant]
     Active Substance: BRIMONIDINE TARTRATE
  7. HYDRAZINE [Concomitant]
     Active Substance: HYDRAZINE SULFATE
  8. XALATAN [Concomitant]
     Active Substance: LATANOPROST
  9. SYNTHROID [Concomitant]
     Active Substance: LEVOTHYROXINE SODIUM
  10. ALDACTONE A [Concomitant]
     Active Substance: SPIRONOLACTONE
  11. METOLAZONE. [Concomitant]
     Active Substance: METOLAZONE
  12. METOPROLOL TARTRATE. [Concomitant]
     Active Substance: METOPROLOL TARTRATE
  13. WARFARIN [Concomitant]
     Active Substance: WARFARIN
  14. FEROSUL [Concomitant]
     Active Substance: FERROUS SULFATE
  15. OMEPRAZOLE. [Concomitant]
     Active Substance: OMEPRAZOLE
  16. ATORVASTATIN [Concomitant]
     Active Substance: ATORVASTATIN
  17. ERYTHROMYCIN. [Concomitant]
     Active Substance: ERYTHROMYCIN
  18. FUROSEMIDE. [Concomitant]
     Active Substance: FUROSEMIDE
  19. LASIX [Concomitant]
     Active Substance: FUROSEMIDE
  20. LATANOPROST. [Concomitant]
     Active Substance: LATANOPROST
  21. LEVOTHYROXIN [Concomitant]
     Active Substance: LEVOTHYROXINE

REACTIONS (4)
  - Blood sodium decreased [Not Recovered/Not Resolved]
  - Unevaluable event [Not Recovered/Not Resolved]
  - Hypotension [Not Recovered/Not Resolved]
  - Product dose omission [Unknown]

NARRATIVE: CASE EVENT DATE: 20200427
